FAERS Safety Report 9728098 (Version 1)
Quarter: 2013Q4

REPORT INFORMATION
  Report Type: Spontaneous
  Country: FR (occurrence: FR)
  Receive Date: 20131204
  Receipt Date: 20131204
  Transmission Date: 20140711
  Serious: Yes (Hospitalization)
  Sender: FDA-Public Use
  Company Number: PHHY2013FR139874

PATIENT
  Age: 72 Year
  Sex: Female

DRUGS (3)
  1. ACLASTA [Suspect]
     Indication: OSTEOPOROSIS
     Dosage: 5 MG, UNK
     Route: 042
     Dates: start: 20130819
  2. MABTHERA [Concomitant]
     Indication: RHEUMATOID ARTHRITIS
     Dosage: 1 DF, EVERY 6 TO 8 WEEKS
     Dates: end: 20130802
  3. CORTANCYL [Concomitant]
     Indication: RHEUMATOID ARTHRITIS
     Dosage: 10 MG, QD
     Route: 048

REACTIONS (15)
  - Respiratory disorder [Recovering/Resolving]
  - Chest discomfort [Unknown]
  - Painful respiration [Unknown]
  - Cardiac failure [Unknown]
  - Pleural effusion [Unknown]
  - Brain natriuretic peptide increased [Unknown]
  - Troponin increased [Unknown]
  - Bundle branch block right [Unknown]
  - Hypernatraemia [Unknown]
  - Dyspnoea [Unknown]
  - Aortic valve incompetence [Unknown]
  - Aortic dilatation [Unknown]
  - Pulmonary hypertension [Unknown]
  - Bronchopneumonia [Unknown]
  - Chest pain [Unknown]
